FAERS Safety Report 10037383 (Version 2)
Quarter: 2014Q2

REPORT INFORMATION
  Report Type: Spontaneous
  Country: IT (occurrence: None)
  Receive Date: 20140324
  Receipt Date: 20140408
  Transmission Date: 20141212
  Serious: Yes (Other)
  Sender: FDA-Public Use
  Company Number: AUR-APL-2014-03405

PATIENT
  Age: 54 Year
  Sex: Male

DRUGS (1)
  1. AMOXICILLIN (AMOXICILLIN) [Suspect]
     Indication: INFLUENZA
     Dosage: TOTAL
     Route: 048
     Dates: start: 20140305, end: 20140305

REACTIONS (2)
  - Generalised erythema [None]
  - Tremor [None]
